FAERS Safety Report 11881727 (Version 1)
Quarter: 2015Q4

REPORT INFORMATION
  Report Type: Spontaneous
  Country: US (occurrence: US)
  Receive Date: 20151231
  Receipt Date: 20151231
  Transmission Date: 20160305
  Serious: No
  Sender: FDA-Public Use
  Company Number: US-BAYER-2015-496712

PATIENT
  Age: 90 Year
  Sex: Female
  Weight: 49.89 kg

DRUGS (2)
  1. ALEVE PM [Suspect]
     Active Substance: DIPHENHYDRAMINE HYDROCHLORIDE\NAPROXEN SODIUM
     Indication: HEADACHE
     Dosage: UNK
  2. ALEVE [Suspect]
     Active Substance: NAPROXEN SODIUM
     Indication: HEADACHE

REACTIONS (6)
  - Dry mouth [None]
  - Product use issue [None]
  - Headache [None]
  - Nausea [None]
  - Asthenia [None]
  - Hyperhidrosis [None]
